FAERS Safety Report 6687340-0 (Version None)
Quarter: 2010Q2

REPORT INFORMATION
  Report Type: 
  Country: None (occurrence: None)
  Receive Date: 20100419
  Receipt Date: 20100406
  Transmission Date: 20101027
  Serious: Yes (Other)
  Sender: FDA-Public Use
  Company Number: GB-ELI_LILLY_AND_COMPANY-GB201004001431

PATIENT
  Age: 23 Year
  Sex: Female

DRUGS (1)
  1. FLUOXETINE [Suspect]
     Indication: ANXIETY
     Dosage: 20 MG, DAILY (1/D)
     Route: 048

REACTIONS (3)
  - OFF LABEL USE [None]
  - PHOTOSENSITIVITY REACTION [None]
  - SUNBURN [None]
